FAERS Safety Report 15015061 (Version 1)
Quarter: 2018Q2

REPORT INFORMATION
  Report Type: Report from Study
  Country: US (occurrence: US)
  Receive Date: 20180615
  Receipt Date: 20180615
  Transmission Date: 20180711
  Serious: Yes (Hospitalization)
  Sender: FDA-Public Use
  Company Number: US-ROCHE-2134290

PATIENT
  Age: 52 Year
  Sex: Female
  Weight: 86.9 kg

DRUGS (4)
  1. PERTUZUMAB. [Suspect]
     Active Substance: PERTUZUMAB
     Dosage: MAINTENENCE DOSE?MOST RECENT DOSE PERTUZUMAB TAKEN PRIOR TO THE ADVERSE EVENTS WAS 420 MG?DATE OF MO
     Route: 042
     Dates: start: 20170330, end: 20180501
  2. TRASTUZUMAB. [Suspect]
     Active Substance: TRASTUZUMAB
     Dosage: MAINTANENCE DOSE
     Route: 042
     Dates: start: 20170330, end: 20180501
  3. TRASTUZUMAB. [Suspect]
     Active Substance: TRASTUZUMAB
     Indication: INFLAMMATORY CARCINOMA OF THE BREAST
     Dosage: LOADING DOSE?MOST RECENT DOSE TRASTUZUMAB TAKEN PRIOR TO THE ADVERSE EVENTS WAS 523 MG?DATE OF MOST
     Route: 042
     Dates: start: 20170330, end: 20180501
  4. PERTUZUMAB. [Suspect]
     Active Substance: PERTUZUMAB
     Indication: INFLAMMATORY CARCINOMA OF THE BREAST
     Dosage: LOADING DOSE
     Route: 042
     Dates: start: 20170330, end: 20180501

REACTIONS (3)
  - Hypoxia [Unknown]
  - Metastases to spine [Unknown]
  - Metastases to central nervous system [Unknown]

NARRATIVE: CASE EVENT DATE: 20180517
